FAERS Safety Report 11229366 (Version 3)
Quarter: 2016Q1

REPORT INFORMATION
  Report Type: Spontaneous
  Country: AT (occurrence: AT)
  Receive Date: 20150630
  Receipt Date: 20160205
  Transmission Date: 20160525
  Serious: Yes (Other)
  Sender: FDA-Public Use
  Company Number: PHHY2015AT078210

PATIENT
  Sex: Female

DRUGS (1)
  1. CERTICAN [Suspect]
     Active Substance: EVEROLIMUS
     Indication: PRODUCT USED FOR UNKNOWN INDICATION
     Dosage: UNK
     Route: 048

REACTIONS (5)
  - Osteolysis [Unknown]
  - Bone cyst [Unknown]
  - Excessive granulation tissue [Unknown]
  - Bone disorder [Unknown]
  - Osteitis [Unknown]
